FAERS Safety Report 12348482 (Version 3)
Quarter: 2017Q4

REPORT INFORMATION
  Report Type: Spontaneous
  Country: AU (occurrence: AU)
  Receive Date: 20160509
  Receipt Date: 20171121
  Transmission Date: 20180320
  Serious: Yes (Death, Life-Threatening, Hospitalization, Disabling, Other)
  Sender: FDA-Public Use
  Company Number: AU-TAKEDA-2016MPI003754

PATIENT
  Age: 70 Year
  Sex: Female
  Weight: 62 kg

DRUGS (14)
  1. OXYCONTIN [Concomitant]
     Active Substance: OXYCODONE HYDROCHLORIDE
     Dosage: 30 MG, BID
     Route: 048
     Dates: start: 20151116
  2. VELCADE [Suspect]
     Active Substance: BORTEZOMIB
     Indication: PLASMA CELL MYELOMA
     Dosage: 1.75 MG, Q3WEEKS
     Route: 058
     Dates: start: 20151027, end: 20160401
  3. OXYCONTIN [Concomitant]
     Active Substance: OXYCODONE HYDROCHLORIDE
     Indication: BACK PAIN
     Dosage: 20 MG, BID
     Route: 048
     Dates: start: 2009, end: 20151115
  4. VITAMIN B [Concomitant]
     Active Substance: VITAMIN B
     Indication: NEUROPATHY PERIPHERAL
     Dosage: UNK UNK, QD
     Route: 048
     Dates: start: 2009
  5. ALLOPURINOL. [Concomitant]
     Active Substance: ALLOPURINOL
     Indication: TUMOUR LYSIS SYNDROME
     Dosage: 300 MG, UNK
     Route: 048
     Dates: start: 20151024, end: 20151105
  6. CRAMPEZE NIGHT CRAMPS [Concomitant]
     Indication: MUSCLE SPASMS
     Dosage: UNK
     Route: 048
     Dates: start: 2013
  7. DEXAMETHASONE. [Suspect]
     Active Substance: DEXAMETHASONE
     Indication: PLASMA CELL MYELOMA
     Dosage: 20 MG, Q3WEEKS
     Route: 048
     Dates: start: 20151027, end: 20160402
  8. CENTRUM                            /07499601/ [Concomitant]
     Indication: ROUTINE HEALTH MAINTENANCE
     Dosage: UNK UNK, QD
     Route: 048
     Dates: start: 2009
  9. ENDONE [Concomitant]
     Active Substance: OXYCODONE HYDROCHLORIDE
     Indication: BACK PAIN
     Dosage: 5 MG, BID
     Route: 048
     Dates: start: 2015
  10. ERGOCALCIFEROL. [Concomitant]
     Active Substance: ERGOCALCIFEROL
     Indication: OSTEOPOROSIS PROPHYLAXIS
     Dosage: 25 ?G, QD
     Route: 048
     Dates: start: 2009
  11. VENETOCLAX. [Suspect]
     Active Substance: VENETOCLAX
     Indication: PLASMA CELL MYELOMA
     Dosage: 1200 MG, QD
     Route: 048
     Dates: start: 20151027, end: 20160406
  12. CALTRATE [Concomitant]
     Active Substance: CALCIUM CARBONATE
     Indication: OSTEOPOROSIS PROPHYLAXIS
     Dosage: 1.5 G, QD
     Route: 048
     Dates: start: 2009
  13. BACTRIM [Concomitant]
     Active Substance: SULFAMETHOXAZOLE\TRIMETHOPRIM
     Indication: ANTIFUNGAL PROPHYLAXIS
     Dosage: UNK UNK, QD
     Route: 048
     Dates: start: 2012
  14. PAMIDRONATE [Concomitant]
     Active Substance: PAMIDRONATE DISODIUM
     Indication: PROPHYLAXIS
     Dosage: 4 MG, MONTHLY
     Route: 042
     Dates: start: 2015

REACTIONS (2)
  - Pneumothorax [Unknown]
  - Guillain-Barre syndrome [Fatal]

NARRATIVE: CASE EVENT DATE: 201604
